FAERS Safety Report 12599624 (Version 1)
Quarter: 2016Q3

REPORT INFORMATION
  Report Type: Spontaneous
  Country: JP (occurrence: JP)
  Receive Date: 20160727
  Receipt Date: 20160727
  Transmission Date: 20161109
  Serious: Yes (Hospitalization)
  Sender: FDA-Public Use
  Company Number: JP-SA-2016SA134458

PATIENT
  Sex: Male

DRUGS (2)
  1. AMARYL [Suspect]
     Active Substance: GLIMEPIRIDE
     Indication: DIABETES MELLITUS
     Route: 048
  2. EQUA [Suspect]
     Active Substance: VILDAGLIPTIN
     Indication: DIABETES MELLITUS
     Route: 065

REACTIONS (4)
  - Pneumonia aspiration [Unknown]
  - Hypoglycaemia [Unknown]
  - Hypoxic-ischaemic encephalopathy [Unknown]
  - Cerebral disorder [Not Recovered/Not Resolved]
